FAERS Safety Report 4566287-X (Version None)
Quarter: 2005Q1

REPORT INFORMATION
  Report Type: 
  Country: None (occurrence: None)
  Receive Date: 20050118
  Receipt Date: 20040713
  Transmission Date: 20050727
  Serious: Yes (Other)
  Sender: FDA-Public Use
  Company Number: HQWYE102014JUL04

PATIENT
  Age: 57 Year
  Sex: Female

DRUGS (4)
  1. PREMPRO [Suspect]
     Indication: HORMONE REPLACEMENT THERAPY
     Dosage: ORAL
     Route: 048
     Dates: start: 19980706, end: 20010201
  2. ESTRACE [Suspect]
     Indication: HORMONE REPLACEMENT THERAPY
  3. MEDROXYPROGESTERONE ACETATE (MEDROXYPROGESTGERONE ACETATE ACETATE,) [Suspect]
     Indication: HORMONE REPLACEMENT THERAPY
     Dates: end: 19980706
  4. PROVERA [Suspect]
     Indication: HORMONE REPLACEMENT THERAPY
     Dates: end: 19980706

REACTIONS (1)
  - BREAST CANCER [None]
